FAERS Safety Report 11882064 (Version 1)
Quarter: 2015Q4

REPORT INFORMATION
  Report Type: Spontaneous
  Country: TH (occurrence: TH)
  Receive Date: 20151231
  Receipt Date: 20151231
  Transmission Date: 20160305
  Serious: Yes (Other)
  Sender: FDA-Public Use
  Company Number: TH-CIPLA LTD.-2015TH09834

PATIENT

DRUGS (1)
  1. LOPINAVIR/RITONAVIR [Suspect]
     Active Substance: LOPINAVIR\RITONAVIR
     Dosage: TWO TABLETS: 400/100 MG TWICE DAILY FOR 14 DAYS
     Route: 048

REACTIONS (2)
  - Drug interaction [Recovered/Resolved]
  - Blood triglycerides increased [Recovered/Resolved]
